FAERS Safety Report 16911820 (Version 2)
Quarter: 2019Q4

REPORT INFORMATION
  Report Type: Spontaneous
  Country: US (occurrence: US)
  Receive Date: 20191014
  Receipt Date: 20191203
  Transmission Date: 20200122
  Serious: No
  Sender: FDA-Public Use
  Company Number: US-SA-2019SA273039

PATIENT
  Age: 23 Year
  Sex: Female
  Weight: 147 kg

DRUGS (5)
  1. FLUTICASONE. [Concomitant]
     Active Substance: FLUTICASONE
     Dosage: PRN (2 SP EACH NOSTRIL.)
     Route: 045
  2. DUPIXENT [Suspect]
     Active Substance: DUPILUMAB
     Indication: ECZEMA
  3. PRENATAL VITAMINS [MINERALS NOS;VITAMINS NOS] [Concomitant]
     Active Substance: MINERALS\VITAMINS
     Route: 048
  4. FEXOFENADINE [Concomitant]
     Active Substance: FEXOFENADINE HYDROCHLORIDE
     Dosage: 1 DF, QD
     Route: 048
  5. DUPIXENT [Suspect]
     Active Substance: DUPILUMAB
     Indication: DERMATITIS ATOPIC
     Dosage: 300 MG, QOW
     Route: 058
     Dates: start: 201907, end: 20190919

REACTIONS (1)
  - Exposure during pregnancy [Unknown]
